FAERS Safety Report 26020583 (Version 1)
Quarter: 2025Q4

REPORT INFORMATION
  Report Type: Spontaneous
  Country: EU (occurrence: EU)
  Receive Date: 20251110
  Receipt Date: 20251110
  Transmission Date: 20260117
  Serious: Yes (Other)
  Sender: MYLAN
  Company Number: None

PATIENT
  Age: 55 Year
  Sex: Male
  Weight: 74 kg

DRUGS (20)
  1. SERTRALINE [Suspect]
     Active Substance: SERTRALINE HYDROCHLORIDE
     Indication: Product used for unknown indication
     Dosage: 200 MILLIGRAM
     Dates: start: 20250115, end: 20250115
  2. SERTRALINE [Suspect]
     Active Substance: SERTRALINE HYDROCHLORIDE
     Dosage: 200 MILLIGRAM
     Route: 065
     Dates: start: 20250115, end: 20250115
  3. SERTRALINE [Suspect]
     Active Substance: SERTRALINE HYDROCHLORIDE
     Dosage: 200 MILLIGRAM
     Route: 065
     Dates: start: 20250115, end: 20250115
  4. SERTRALINE [Suspect]
     Active Substance: SERTRALINE HYDROCHLORIDE
     Dosage: 200 MILLIGRAM
     Dates: start: 20250115, end: 20250115
  5. MIRTAZAPINE [Suspect]
     Active Substance: MIRTAZAPINE
     Indication: Product used for unknown indication
     Dosage: 60 MILLIGRAM
     Dates: start: 20250115, end: 20250115
  6. MIRTAZAPINE [Suspect]
     Active Substance: MIRTAZAPINE
     Dosage: 60 MILLIGRAM
     Route: 065
     Dates: start: 20250115, end: 20250115
  7. MIRTAZAPINE [Suspect]
     Active Substance: MIRTAZAPINE
     Dosage: 60 MILLIGRAM
     Route: 065
     Dates: start: 20250115, end: 20250115
  8. MIRTAZAPINE [Suspect]
     Active Substance: MIRTAZAPINE
     Dosage: 60 MILLIGRAM
     Dates: start: 20250115, end: 20250115
  9. VENLAFAXINE [Suspect]
     Active Substance: VENLAFAXINE HYDROCHLORIDE
     Indication: Product used for unknown indication
     Dosage: 1500 MILLIGRAM
     Dates: start: 20250115, end: 20250115
  10. VENLAFAXINE [Suspect]
     Active Substance: VENLAFAXINE HYDROCHLORIDE
     Dosage: 1500 MILLIGRAM
     Route: 065
     Dates: start: 20250115, end: 20250115
  11. VENLAFAXINE [Suspect]
     Active Substance: VENLAFAXINE HYDROCHLORIDE
     Dosage: 1500 MILLIGRAM
     Route: 065
     Dates: start: 20250115, end: 20250115
  12. VENLAFAXINE [Suspect]
     Active Substance: VENLAFAXINE HYDROCHLORIDE
     Dosage: 1500 MILLIGRAM
     Dates: start: 20250115, end: 20250115
  13. ARIPIPRAZOLE [Suspect]
     Active Substance: ARIPIPRAZOLE
     Indication: Product used for unknown indication
     Dosage: 140 MILLIGRAM
     Dates: start: 20250115, end: 20250115
  14. ARIPIPRAZOLE [Suspect]
     Active Substance: ARIPIPRAZOLE
     Dosage: 140 MILLIGRAM
     Route: 065
     Dates: start: 20250115, end: 20250115
  15. ARIPIPRAZOLE [Suspect]
     Active Substance: ARIPIPRAZOLE
     Dosage: 140 MILLIGRAM
     Route: 065
     Dates: start: 20250115, end: 20250115
  16. ARIPIPRAZOLE [Suspect]
     Active Substance: ARIPIPRAZOLE
     Dosage: 140 MILLIGRAM
     Dates: start: 20250115, end: 20250115
  17. ZOPICLONE [Suspect]
     Active Substance: ZOPICLONE
     Indication: Product used for unknown indication
     Dosage: 22.5 MILLIGRAM
     Dates: start: 20250115, end: 20250115
  18. ZOPICLONE [Suspect]
     Active Substance: ZOPICLONE
     Dosage: 22.5 MILLIGRAM
     Route: 065
     Dates: start: 20250115, end: 20250115
  19. ZOPICLONE [Suspect]
     Active Substance: ZOPICLONE
     Dosage: 22.5 MILLIGRAM
     Route: 065
     Dates: start: 20250115, end: 20250115
  20. ZOPICLONE [Suspect]
     Active Substance: ZOPICLONE
     Dosage: 22.5 MILLIGRAM
     Dates: start: 20250115, end: 20250115

REACTIONS (3)
  - Drug use disorder [Not Recovered/Not Resolved]
  - Toxicity to various agents [Recovering/Resolving]
  - Psychomotor skills impaired [Recovering/Resolving]

NARRATIVE: CASE EVENT DATE: 20250115
